FAERS Safety Report 9543298 (Version 2)
Quarter: 2013Q3

REPORT INFORMATION
  Report Type: Spontaneous
  Country: IT (occurrence: IT)
  Receive Date: 20130923
  Receipt Date: 20130924
  Transmission Date: 20140515
  Serious: Yes (Hospitalization)
  Sender: FDA-Public Use
  Company Number: PHHY2013IT104525

PATIENT
  Age: 69 Year
  Sex: Male

DRUGS (12)
  1. MYFORTIC [Suspect]
     Indication: PROPHYLAXIS AGAINST TRANSPLANT REJECTION
     Dosage: 720 MG, QD
     Route: 048
     Dates: start: 20130529, end: 20130601
  2. DELTACORTENE [Suspect]
     Dosage: 12.5 MG, QD
     Route: 048
     Dates: start: 20130501, end: 20130601
  3. AVODART [Concomitant]
     Indication: BENIGN PROSTATIC HYPERPLASIA
     Dosage: 0.5 MG, UNK
     Route: 048
  4. DIDROGYL [Concomitant]
     Dosage: 15 DF, UNK
     Route: 048
  5. TRIATEC [Concomitant]
     Dosage: 5 MG, UNK
     Route: 048
  6. CARDICOR [Concomitant]
     Dosage: 1.25 MG, UNK
     Route: 048
  7. SANDIMMUN NEORAL [Concomitant]
     Dosage: 100 MG, UNK
     Route: 048
  8. LANSOPRAZOLO DOC [Concomitant]
     Dosage: UNK
     Route: 048
  9. LASILIX [Concomitant]
     Dosage: 50 MG, UNK
     Route: 048
  10. ALLOPURINOL TEVA [Concomitant]
     Dosage: 150 MG, UNK
     Route: 048
  11. PRADIF [Concomitant]
     Dosage: 0.4 MG, UNK
  12. SODIUM BICARBONATE [Concomitant]
     Dosage: UNK

REACTIONS (5)
  - Presyncope [Unknown]
  - Asthenia [Unknown]
  - Hypotension [Unknown]
  - Melaena [Unknown]
  - Anaemia [Unknown]
